FAERS Safety Report 6904912-6 (Version None)
Quarter: 2010Q3

REPORT INFORMATION
  Report Type: 
  Country: None (occurrence: None)
  Receive Date: 20100804
  Receipt Date: 20090804
  Transmission Date: 20110219
  Serious: Yes (Hospitalization, Other)
  Sender: FDA-Public Use
  Company Number: US-PFIZER INC-2009240515

PATIENT
  Sex: Female
  Weight: 77.098 kg

DRUGS (4)
  1. LYRICA [Suspect]
     Indication: TRIGEMINAL NEURALGIA
     Dosage: 600 MG, 1X/DAY
     Route: 048
     Dates: start: 20080701, end: 20090601
  2. VALIUM [Concomitant]
     Dosage: UNK
     Route: 054
  3. XANAX [Concomitant]
     Dosage: UNK
     Route: 048
  4. REMERON [Concomitant]
     Dosage: UNK
     Route: 048

REACTIONS (7)
  - ANXIETY [None]
  - ILL-DEFINED DISORDER [None]
  - PAIN IN EXTREMITY [None]
  - SLEEP DISORDER [None]
  - SUICIDAL IDEATION [None]
  - TREMOR [None]
  - WEIGHT INCREASED [None]
